FAERS Safety Report 15769462 (Version 3)
Quarter: 2019Q3

REPORT INFORMATION
  Report Type: Report from Study
  Country: GB (occurrence: GB)
  Receive Date: 20181228
  Receipt Date: 20190722
  Transmission Date: 20191004
  Serious: Yes (Life-Threatening, Hospitalization, Other)
  Sender: FDA-Public Use
  Company Number: GB-IPSEN BIOPHARMACEUTICALS, INC.-2018-17797

PATIENT
  Sex: Male
  Weight: 80 kg

DRUGS (2)
  1. SOMATULINE [Suspect]
     Active Substance: LANREOTIDE ACETATE
     Indication: NEUROENDOCRINE TUMOUR
     Route: 058
     Dates: start: 20181026
  2. SOMATULINE [Suspect]
     Active Substance: LANREOTIDE ACETATE
     Route: 058

REACTIONS (7)
  - Acute kidney injury [Unknown]
  - Cerebrovascular accident [Unknown]
  - Small intestinal haemorrhage [Recovering/Resolving]
  - Peritoneal haemorrhage [Recovering/Resolving]
  - Cholecystitis infective [Recovering/Resolving]
  - Retroperitoneal haemorrhage [Recovering/Resolving]
  - Deep vein thrombosis [Unknown]
